FAERS Safety Report 13564993 (Version 2)
Quarter: 2017Q2

REPORT INFORMATION
  Report Type: Report from Study
  Country: CA (occurrence: CA)
  Receive Date: 20170519
  Receipt Date: 20170614
  Transmission Date: 20170830
  Serious: Yes (Hospitalization)
  Sender: FDA-Public Use
  Company Number: CA-HLSUS-2017-CA-000494

PATIENT
  Age: 64 Year
  Sex: Male
  Weight: 70 kg

DRUGS (1)
  1. CLOZARIL [Suspect]
     Active Substance: CLOZAPINE
     Route: 048
     Dates: start: 19950511, end: 2016

REACTIONS (13)
  - Altered state of consciousness [Unknown]
  - Septic shock [Unknown]
  - Constipation [Unknown]
  - Pneumonia [Unknown]
  - Respiratory tract infection [Unknown]
  - Delusion [Unknown]
  - Tachycardia [Unknown]
  - Electrocardiogram ST segment elevation [Unknown]
  - Rales [Unknown]
  - Hypotension [Unknown]
  - Faecaloma [Unknown]
  - Respiratory failure [Unknown]
  - Muscle atrophy [Unknown]

NARRATIVE: CASE EVENT DATE: 20160826
